FAERS Safety Report 19979110 (Version 2)
Quarter: 2021Q4

REPORT INFORMATION
  Report Type: Spontaneous
  Country: FI (occurrence: FI)
  Receive Date: 20211021
  Receipt Date: 20211102
  Transmission Date: 20220303
  Serious: Yes (Other)
  Sender: FDA-Public Use
  Company Number: FI-NOVARTISPH-NVSC2021FI226331

PATIENT
  Age: 36 Year
  Sex: Female

DRUGS (3)
  1. METHOTREXATE [Suspect]
     Active Substance: METHOTREXATE
     Indication: Sarcoidosis
     Dosage: UNK UNK, UNKNOWN
     Route: 065
  2. INFLECTRA [Suspect]
     Active Substance: INFLIXIMAB-DYYB
     Indication: Sarcoidosis
     Dosage: UNK UNK, UNKNOWN
     Route: 065
  3. REMICADE [Suspect]
     Active Substance: INFLIXIMAB
     Indication: Sarcoidosis
     Dosage: UNK UNK, UNKNOWN
     Route: 065

REACTIONS (3)
  - Sarcoidosis [Unknown]
  - Disease progression [Unknown]
  - Product use in unapproved indication [Unknown]
